FAERS Safety Report 7817625-3 (Version None)
Quarter: 2011Q4

REPORT INFORMATION
  Report Type: 
  Country: None (occurrence: None)
  Receive Date: 20111017
  Receipt Date: 20111010
  Transmission Date: 20120403
  Serious: Yes (Hospitalization)
  Sender: FDA-Public Use
  Company Number: DE-JNJFOC-20111004074

PATIENT
  Age: 25 Year
  Sex: Female
  Weight: 72 kg

DRUGS (3)
  1. DIAZEPAM [Suspect]
     Indication: EPILEPSY
     Route: 042
     Dates: start: 20101120, end: 20101120
  2. TOPAMAX [Suspect]
     Indication: EPILEPSY
     Dosage: DOSES PER DAY: 100 MG-100 MG-150 MG
     Route: 048
     Dates: start: 20040101
  3. FOLIC ACID [Suspect]
     Indication: PROPHYLAXIS OF NEURAL TUBE DEFECT
     Route: 048

REACTIONS (3)
  - EPILEPSY [None]
  - PREMATURE RUPTURE OF MEMBRANES [None]
  - MATERNAL EXPOSURE DURING PREGNANCY [None]
